FAERS Safety Report 8804004 (Version 1)
Quarter: 2012Q4

REPORT INFORMATION
  Report Type: Report from Study
  Country: US (occurrence: US)
  Receive Date: 20120924
  Receipt Date: 20120924
  Transmission Date: 20130627
  Serious: Yes (Hospitalization, Other)
  Sender: FDA-Public Use
  Company Number: US-GLAXOSMITHKLINE-A0994203A

PATIENT
  Age: 70 Year
  Sex: Male
  Weight: 126 kg

DRUGS (5)
  1. DYAZIDE [Suspect]
  2. METFORMIN [Suspect]
  3. SUNITINIB [Suspect]
     Indication: ADRENAL CARCINOMA
     Dosage: 37.5MG Per day
     Route: 048
     Dates: start: 20110627
  4. BEVACIZUMAB [Suspect]
     Indication: ADRENAL CARCINOMA
     Dosage: 5MGK Cyclic
     Route: 042
     Dates: start: 20110627
  5. HCTZ [Concomitant]

REACTIONS (4)
  - Renal failure acute [Recovered/Resolved]
  - Dehydration [Recovered/Resolved]
  - Hyperuricaemia [Recovered/Resolved]
  - Platelet count decreased [Recovered/Resolved]
